FAERS Safety Report 9731465 (Version 2)
Quarter: 2013Q4

REPORT INFORMATION
  Report Type: Spontaneous
  Country: JP (occurrence: None)
  Receive Date: 20131203
  Receipt Date: 20131217
  Transmission Date: 20140711
  Serious: Yes (Other)
  Sender: FDA-Public Use
  Company Number: JP-20130103

PATIENT
  Age: 3 Decade
  Sex: Female

DRUGS (1)
  1. LIPIODOL ULTRA FLUIDE [Suspect]
     Indication: HYSTEROSALPINGOGRAM
     Route: 050

REACTIONS (2)
  - Hydrocele female [None]
  - Medication residue present [None]
